FAERS Safety Report 9391433 (Version 1)
Quarter: 2013Q3

REPORT INFORMATION
  Report Type: Spontaneous
  Country: JP (occurrence: JP)
  Receive Date: 20130709
  Receipt Date: 20130709
  Transmission Date: 20140515
  Serious: Yes (Other)
  Sender: FDA-Public Use
  Company Number: JP-009507513-1307JPN002764

PATIENT
  Sex: 0

DRUGS (1)
  1. TRUSOPT [Suspect]
     Dosage: DAILY DOSE UNKNOWN
     Route: 047

REACTIONS (2)
  - Eyelid ptosis [Unknown]
  - Blepharospasm [Unknown]
